FAERS Safety Report 9220048 (Version 1)
Quarter: 2013Q1

REPORT INFORMATION
  Report Type: Spontaneous
  Country: US (occurrence: None)
  Receive Date: 20120830
  Receipt Date: 20120830
  Transmission Date: 20140127
  Serious: Yes (Other)
  Sender: FDA-Public Use
  Company Number: US008615

PATIENT
  Age: 56 Year
  Sex: Male

DRUGS (2)
  1. GABITRIL (TIAGABINE) [Suspect]
     Route: 048
     Dates: start: 19980323
  2. DEPAKOTE [Concomitant]

REACTIONS (5)
  - Grand mal convulsion [None]
  - Pyrexia [None]
  - Hiccups [None]
  - Vomiting [None]
  - Chills [None]
